FAERS Safety Report 21514726 (Version 1)
Quarter: 2022Q4

REPORT INFORMATION
  Report Type: Spontaneous
  Country: US (occurrence: US)
  Receive Date: 20221027
  Receipt Date: 20221027
  Transmission Date: 20230113
  Serious: Yes (Hospitalization, Other)
  Sender: FDA-Public Use
  Company Number: US-PFIZER INC-PV202200084143

PATIENT
  Age: 45 Year
  Sex: Male

DRUGS (5)
  1. METHYLPREDNISOLONE ACETATE [Suspect]
     Active Substance: METHYLPREDNISOLONE ACETATE
     Indication: Ecchymosis
     Dosage: UNK
  2. DIPHENHYDRAMINE HYDROCHLORIDE [Suspect]
     Active Substance: DIPHENHYDRAMINE HYDROCHLORIDE
     Indication: Ecchymosis
     Dosage: UNK
  3. FAMOTIDINE [Suspect]
     Active Substance: FAMOTIDINE
     Indication: Ecchymosis
     Dosage: UNK
  4. UNSPECIFIED INGREDIENT [Suspect]
     Active Substance: UNSPECIFIED INGREDIENT
     Indication: Ecchymosis
     Dosage: TWO VIALS
  5. UNSPECIFIED INGREDIENT [Suspect]
     Active Substance: UNSPECIFIED INGREDIENT
     Dosage: TWO VIALS EACH AT HOUR 18 AND HOUR 24

REACTIONS (3)
  - Fibrin D dimer increased [Unknown]
  - Oedema [Recovering/Resolving]
  - Pain [Recovered/Resolved]
